FAERS Safety Report 21274631 (Version 6)
Quarter: 2023Q1

REPORT INFORMATION
  Report Type: Report from Study
  Country: US (occurrence: US)
  Receive Date: 20220831
  Receipt Date: 20230119
  Transmission Date: 20230418
  Serious: No
  Sender: FDA-Public Use
  Company Number: US-TAKEDA-2022TUS059630

PATIENT
  Sex: Female
  Weight: 58 kg

DRUGS (9)
  1. MOBOCERTINIB [Suspect]
     Active Substance: MOBOCERTINIB
     Indication: Lung neoplasm malignant
     Dosage: 120 MILLIGRAM, QD
     Route: 048
     Dates: start: 20220815
  2. MOBOCERTINIB [Suspect]
     Active Substance: MOBOCERTINIB
     Indication: Non-small cell lung cancer
     Dosage: 80 MILLIGRAM, QD
     Route: 048
     Dates: start: 20220815
  3. HM [Concomitant]
     Dosage: UNK
     Route: 065
  4. CALCIUM\VITAMIN D [Concomitant]
     Active Substance: CALCIUM\VITAMIN D
     Dosage: UNK
     Route: 065
  5. TURMERIC 15800 COMPLEX [Concomitant]
     Dosage: 500 MILLIGRAM
     Route: 065
  6. Viactiv [Concomitant]
     Dosage: UNK
     Route: 065
  7. Vitaline [Concomitant]
     Dosage: UNK
     Route: 065
  8. SELENIUM [Concomitant]
     Active Substance: SELENIUM
     Dosage: UNK
     Route: 065
  9. VITAMIN C [Concomitant]
     Active Substance: ASCORBIC ACID
     Dosage: 1000 MILLIGRAM
     Route: 065

REACTIONS (13)
  - Multiple allergies [Unknown]
  - Sensitive skin [Unknown]
  - Aphonia [Unknown]
  - Collagen disorder [Unknown]
  - Oropharyngeal pain [Unknown]
  - Muscle atrophy [Unknown]
  - Alopecia [Unknown]
  - Dry skin [Unknown]
  - Diarrhoea [Unknown]
  - Palmar-plantar erythrodysaesthesia syndrome [Unknown]
  - Decreased appetite [Unknown]
  - Weight decreased [Unknown]
  - Product dose omission issue [Unknown]
